FAERS Safety Report 8509951-X (Version None)
Quarter: 2012Q3

REPORT INFORMATION
  Report Type: 
  Country: None (occurrence: None)
  Receive Date: 20120713
  Receipt Date: 20120704
  Transmission Date: 20120928
  Serious: Yes (Other)
  Sender: FDA-Public Use
  Company Number: BR-ELI_LILLY_AND_COMPANY-BR201205006813

PATIENT
  Sex: Female
  Weight: 47 kg

DRUGS (8)
  1. ACETAMINOPHEN [Concomitant]
     Indication: PAIN
     Dosage: UNK, UNKNOWN
     Route: 065
  2. ZOLPIDEM TARTRATE [Concomitant]
     Dosage: 0.25 UNK, PRN
     Route: 065
  3. METHADON HCL TAB [Concomitant]
     Indication: PAIN
     Dosage: UNK, PRN
     Route: 065
  4. GLUCOSAMINE SULFATE [Concomitant]
     Indication: OSTEOPOROSIS
     Dosage: UNK, UNKNOWN
     Route: 065
  5. ENALAPRIL MALEATE [Concomitant]
     Indication: HYPERTENSION
     Dosage: 10 MG, QD
     Route: 065
  6. CALCIUM SANDOZ [Concomitant]
     Indication: VITAMIN SUPPLEMENTATION
     Dosage: UNK, UNKNOWN
     Route: 065
  7. FORTEO [Suspect]
     Indication: OSTEOPOROSIS
     Dosage: 20 UG, QD
     Route: 058
     Dates: start: 20110827
  8. SERTRALINE HYDROCHLORIDE [Concomitant]
     Dosage: UNK, UNKNOWN
     Route: 065

REACTIONS (4)
  - ARRHYTHMIA [None]
  - SYNCOPE [None]
  - FEELING ABNORMAL [None]
  - CARDIAC FAILURE [None]
